FAERS Safety Report 8190033-4 (Version None)
Quarter: 2012Q1

REPORT INFORMATION
  Report Type: 
  Country: None (occurrence: None)
  Receive Date: 20120305
  Receipt Date: 20120220
  Transmission Date: 20120608
  Serious: Yes (Hospitalization, Other)
  Sender: FDA-Public Use
  Company Number: 2012ST000217

PATIENT
  Age: 22 Year
  Sex: Female

DRUGS (7)
  1. TACROLIMUS [Suspect]
     Indication: IMMUNOSUPPRESSION
  2. MYCOPHENOLIC ACID [Suspect]
     Indication: IMMUNOSUPPRESSION
  3. FLUCYTOSINE [Suspect]
     Indication: MENINGITIS
  4. PREDNISONE [Suspect]
     Indication: IMMUNOSUPPRESSION
  5. ABELCET [Suspect]
     Indication: MENINGITIS
     Dosage: 5 MG/KG;QD ; 200 MG;QD
     Dates: start: 20080101, end: 20080101
  6. ABELCET [Suspect]
     Indication: MENINGITIS
     Dosage: 5 MG/KG;QD ; 200 MG;QD
     Dates: start: 20080101, end: 20080101
  7. FLUCONAZOLE [Suspect]
     Indication: MENINGITIS
     Dosage: 200 MG;QD

REACTIONS (6)
  - HEADACHE [None]
  - IMMUNE RECONSTITUTION SYNDROME [None]
  - NUCLEAR MAGNETIC RESONANCE IMAGING BRAIN ABNORMAL [None]
  - MENINGITIS [None]
  - BLOOD CREATININE INCREASED [None]
  - CRYPTOCOCCUS TEST POSITIVE [None]
